FAERS Safety Report 5668729-5 (Version None)
Quarter: 2008Q1

REPORT INFORMATION
  Report Type: 
  Country: None (occurrence: None)
  Receive Date: 20080312
  Receipt Date: 20080312
  Transmission Date: 20080703
  Serious: Yes (Hospitalization)
  Sender: FDA-Public Use
  Company Number: None

PATIENT
  Age: 83 Year
  Sex: Male

DRUGS (2)
  1. FUROSEMIDE [Suspect]
     Indication: CARDIAC FAILURE CONGESTIVE
     Dosage: 20MG EVERY DAY PO
     Route: 048
     Dates: start: 20010706, end: 20071220
  2. HYDRALAZINE HCL [Suspect]
     Indication: CARDIAC FAILURE CONGESTIVE
     Dosage: 50MG TID PO
     Route: 048
     Dates: start: 20030325

REACTIONS (3)
  - DIZZINESS [None]
  - HYPOTENSION [None]
  - SYNCOPE [None]
